FAERS Safety Report 26140770 (Version 1)
Quarter: 2025Q4

REPORT INFORMATION
  Report Type: Spontaneous
  Country: EU (occurrence: EU)
  Receive Date: 20251210
  Receipt Date: 20251210
  Transmission Date: 20260118
  Serious: Yes (Other)
  Sender: TEVA
  Company Number: None

PATIENT
  Age: 89 Year
  Sex: Female

DRUGS (1)
  1. FENTANYL [Suspect]
     Active Substance: FENTANYL
     Indication: Pain
     Dosage: LC
     Route: 062
     Dates: end: 20250403

REACTIONS (1)
  - Faecaloma [Recovered/Resolved]

NARRATIVE: CASE EVENT DATE: 20250412
